FAERS Safety Report 7031007-6 (Version None)
Quarter: 2010Q4

REPORT INFORMATION
  Report Type: 
  Country: None (occurrence: None)
  Receive Date: 20101006
  Receipt Date: 20100810
  Transmission Date: 20110411
  Serious: Yes (Hospitalization)
  Sender: FDA-Public Use
  Company Number: US-BRISTOL-MYERS SQUIBB COMPANY-15216070

PATIENT
  Age: 51 Year
  Sex: Female
  Weight: 46 kg

DRUGS (8)
  1. KENALOG-40 [Suspect]
     Indication: ROTATOR CUFF SYNDROME
     Dates: start: 20100722
  2. MARCAINE [Suspect]
     Indication: ROTATOR CUFF SYNDROME
     Dates: start: 20100722
  3. WELLBUTRIN XL [Concomitant]
     Dosage: IN THE MORNING
  4. ASPIRIN [Concomitant]
     Dosage: IN THE MORNING
  5. ZOCOR [Concomitant]
     Dosage: AT NIGHT
  6. TOPAMAX [Concomitant]
     Dosage: AT NIGHT
  7. TEMAZEPAM [Concomitant]
     Dosage: AT NIGHT
  8. CELEXA [Concomitant]
     Dosage: AT NIGHT

REACTIONS (1)
  - SYNCOPE [None]
